FAERS Safety Report 9723672 (Version 1)
Quarter: 2013Q4

REPORT INFORMATION
  Report Type: Spontaneous
  Country: NO (occurrence: NO)
  Receive Date: 20131202
  Receipt Date: 20131202
  Transmission Date: 20140711
  Serious: Yes (Other)
  Sender: FDA-Public Use
  Company Number: NO-GLAXOSMITHKLINE-B0948526A

PATIENT
  Sex: Male

DRUGS (4)
  1. REQUIP DEPOT [Suspect]
     Indication: PARKINSON^S DISEASE
     Dosage: 14MG PER DAY
     Route: 048
     Dates: start: 200911
  2. AZILECT [Concomitant]
     Indication: PARKINSON^S DISEASE
     Dosage: 1MG PER DAY
     Route: 048
     Dates: start: 201206
  3. MADOPAR [Concomitant]
     Indication: PARKINSON^S DISEASE
     Route: 048
     Dates: start: 201301
  4. STALEVO [Concomitant]
     Indication: PARKINSON^S DISEASE
     Route: 048
     Dates: start: 201206

REACTIONS (2)
  - Personality change [Unknown]
  - Impulse-control disorder [Unknown]
